FAERS Safety Report 8011393-0 (Version None)
Quarter: 2011Q4

REPORT INFORMATION
  Report Type: 
  Country: None (occurrence: None)
  Receive Date: 20111228
  Receipt Date: 20111219
  Transmission Date: 20120403
  Serious: Yes (Death)
  Sender: FDA-Public Use
  Company Number: US-PFIZER INC-2011308948

PATIENT
  Age: 45 Year
  Sex: Female

DRUGS (10)
  1. PREGABALIN [Suspect]
     Dosage: UNK
     Route: 048
  2. TOPIRAMATE [Suspect]
     Dosage: UNK
     Route: 048
  3. ACETAMINOPHEN AND HYDROCODONE BITARTRATE [Suspect]
     Dosage: UNK
     Route: 048
  4. DIPHENHYDRAMINE HCL [Suspect]
     Dosage: UNK
     Route: 048
  5. LAMOTRIGINE [Suspect]
     Dosage: UNK
     Route: 048
  6. PRAMIPEXOLE DIHYCHLLORIDE [Suspect]
     Dosage: UNK
     Route: 048
  7. CLONAZEPAM [Suspect]
     Dosage: UNK
     Route: 048
  8. ACETAMINOPHEN / DIPHENHYDRAMINE [Suspect]
     Dosage: UNK
     Route: 048
  9. ACETAMINOPHEN WITH PROPOXYPHENE HCL TAB [Suspect]
     Dosage: UNK
     Route: 048
  10. FLUOXETINE [Suspect]
     Dosage: UNK
     Route: 048

REACTIONS (1)
  - DEATH [None]
